FAERS Safety Report 21557740 (Version 1)
Quarter: 2022Q4

REPORT INFORMATION
  Report Type: Spontaneous
  Country: US (occurrence: US)
  Receive Date: 20221106
  Receipt Date: 20221106
  Transmission Date: 20230113
  Serious: No
  Sender: FDA-Public Use
  Company Number: US-PADAGIS-2022PAD00830

PATIENT

DRUGS (1)
  1. ESTRADIOL [Suspect]
     Active Substance: ESTRADIOL
     Indication: Vulvovaginal dryness
     Dosage: 1 DF, TWICE A WEEK
     Route: 067
     Dates: start: 202210

REACTIONS (1)
  - Application site pain [Not Recovered/Not Resolved]

NARRATIVE: CASE EVENT DATE: 20220801
